FAERS Safety Report 24767395 (Version 1)
Quarter: 2024Q4

REPORT INFORMATION
  Report Type: Spontaneous
  Country: ES (occurrence: ES)
  Receive Date: 20241223
  Receipt Date: 20241223
  Transmission Date: 20250115
  Serious: Yes (Other)
  Sender: MYLAN
  Company Number: None

PATIENT
  Age: 66 Year
  Sex: Male

DRUGS (12)
  1. ZOLEDRONIC ACID [Suspect]
     Active Substance: ZOLEDRONIC ACID
     Indication: Plasma cell myeloma
     Dosage: 4 MILLIGRAM, TOTAL
     Route: 042
     Dates: start: 20241015, end: 20241015
  2. ESOMEPRAZOLE [Concomitant]
     Active Substance: ESOMEPRAZOLE
     Dosage: 40 MILLIGRAM, QD (28 TABLETS)
     Route: 048
     Dates: start: 20230802
  3. ASPIRIN [Concomitant]
     Active Substance: ASPIRIN
     Dosage: 100 MILLIGRAM, QD (30 TABLETS)
     Route: 048
     Dates: start: 20240521
  4. Duloxetina cinfamed [Concomitant]
     Dosage: 30 MILLIGRAM, QD (28 CAPSULES)
     Route: 048
  5. FOLIC ACID [Concomitant]
     Active Substance: FOLIC ACID
     Dosage: 5 MILLIGRAM, QD (28 TABLETS)
     Route: 048
     Dates: start: 20240308
  6. DUTASTERIDE\TAMSULOSIN [Concomitant]
     Active Substance: DUTASTERIDE\TAMSULOSIN
     Dosage: 1 DOSAGE FORM, QD (30 CAPSULES)
     Route: 048
     Dates: start: 20240410
  7. PREGABALIN [Concomitant]
     Active Substance: PREGABALIN
     Dosage: 75 MILLIGRAM, BID (56 CAPSULES)
     Route: 048
     Dates: start: 20240117
  8. ACICLOVIR NORMON [Concomitant]
     Dosage: 800 MILLIGRAM, BID (35 TABLETS)
     Route: 048
     Dates: start: 20230904
  9. SULFAMETHOXAZOLE\TRIMETHOPRIM [Concomitant]
     Active Substance: SULFAMETHOXAZOLE\TRIMETHOPRIM
     Dosage: 20 DOSAGE FORM, QW (50 TABLETS)
     Route: 048
     Dates: start: 20240308
  10. CHOLECALCIFEROL [Concomitant]
     Active Substance: CHOLECALCIFEROL
     Dosage: 25000 INTERNATIONAL UNIT, MONTHLY (1 BOTTLE OF 2.5 ML)
     Route: 048
     Dates: start: 20221019
  11. CYANOCOBALAMIN [Concomitant]
     Active Substance: CYANOCOBALAMIN
     Dosage: 1 MILLIGRAM, MONTHLY (5 AMPOULES OF 2 ML)
     Route: 030
     Dates: start: 20221019
  12. AMLODIPINE BESYLATE [Concomitant]
     Active Substance: AMLODIPINE BESYLATE
     Dosage: 5 MILLIGRAM, QD (30 TABLETS)
     Route: 048
     Dates: start: 20240429

REACTIONS (1)
  - Urticaria [Recovered/Resolved]

NARRATIVE: CASE EVENT DATE: 20241016
